FAERS Safety Report 13993260 (Version 6)
Quarter: 2017Q4

REPORT INFORMATION
  Report Type: Spontaneous
  Country: CA (occurrence: CA)
  Receive Date: 20170920
  Receipt Date: 20171207
  Transmission Date: 20180321
  Serious: Yes (Hospitalization)
  Sender: FDA-Public Use
  Company Number: CA-CELLTRION INC.-2017CA012541

PATIENT

DRUGS (7)
  1. PREDNISONE. [Concomitant]
     Active Substance: PREDNISONE
     Dosage: UNK
     Route: 065
  2. VERSED [Concomitant]
     Active Substance: MIDAZOLAM HYDROCHLORIDE
     Dosage: 4 MG, UNK
     Route: 065
     Dates: start: 20170911, end: 20170911
  3. INFLECTRA [Suspect]
     Active Substance: INFLIXIMAB-DYYB
     Dosage: 835 MG, SINGLE
     Route: 065
     Dates: start: 20170905, end: 20170905
  4. DEMEROL [Concomitant]
     Active Substance: MEPERIDINE HYDROCHLORIDE
     Dosage: 100 MG, UNK
     Route: 065
     Dates: start: 20170911, end: 20170911
  5. INFLECTRA [Suspect]
     Active Substance: INFLIXIMAB-DYYB
     Indication: COLITIS ULCERATIVE
     Dosage: 10 MG/KG, CYCLIC (EVERY 4 WEEKS FOR 48 MONTHS)
     Route: 042
     Dates: start: 20170713, end: 20170724
  6. INFLECTRA [Suspect]
     Active Substance: INFLIXIMAB-DYYB
     Dosage: 835 MG, SINGLE
     Route: 065
     Dates: start: 20170724, end: 20170724
  7. INFLECTRA [Suspect]
     Active Substance: INFLIXIMAB-DYYB
     Dosage: 835 MG, SINGLE
     Route: 042
     Dates: start: 20171010, end: 20171010

REACTIONS (1)
  - Condition aggravated [Not Recovered/Not Resolved]

NARRATIVE: CASE EVENT DATE: 2017
